FAERS Safety Report 8353686-3 (Version None)
Quarter: 2012Q2

REPORT INFORMATION
  Report Type: 
  Country: None (occurrence: None)
  Receive Date: 20120511
  Receipt Date: 20120430
  Transmission Date: 20120825
  Serious: No
  Sender: FDA-Public Use
  Company Number: US-ENDO PHARMACEUTICALS INC.-OPCR20120619

PATIENT
  Sex: Male

DRUGS (3)
  1. OPANA ER [Suspect]
     Indication: CERVICAL VERTEBRAL FRACTURE
     Route: 048
     Dates: start: 20120201
  2. OPANA ER [Concomitant]
     Indication: PAIN
     Dosage: UNKNOWN
     Route: 048
     Dates: end: 20120101
  3. OPANA ER [Concomitant]
     Indication: NECK INJURY

REACTIONS (4)
  - FOREIGN BODY [None]
  - DIARRHOEA [None]
  - ABDOMINAL DISCOMFORT [None]
  - MEDICATION RESIDUE [None]
